FAERS Safety Report 23767238 (Version 1)
Quarter: 2024Q2

REPORT INFORMATION
  Report Type: Spontaneous
  Country: FI (occurrence: FI)
  Receive Date: 20240422
  Receipt Date: 20240422
  Transmission Date: 20240722
  Serious: Yes (Other)
  Sender: FDA-Public Use
  Company Number: FI-ABBVIE-5714331

PATIENT
  Age: 26 Year

DRUGS (1)
  1. ADALIMUMAB [Suspect]
     Active Substance: ADALIMUMAB\ISOPROPYL ALCOHOL
     Indication: Crohn^s disease
     Dosage: UNK
     Route: 058
     Dates: start: 2022

REACTIONS (5)
  - Crohn^s disease [Recovered/Resolved]
  - Drug ineffective [Recovered/Resolved]
  - Gastrointestinal disorder [Recovered/Resolved]
  - Myalgia [Recovered/Resolved]
  - Arthralgia [Recovered/Resolved]
